FAERS Safety Report 25494638 (Version 1)
Quarter: 2025Q2

REPORT INFORMATION
  Report Type: Spontaneous
  Country: ES (occurrence: ES)
  Receive Date: 20250630
  Receipt Date: 20250630
  Transmission Date: 20250717
  Serious: Yes (Other)
  Sender: OTSUKA
  Company Number: None

PATIENT
  Age: 32 Year
  Sex: Female

DRUGS (5)
  1. ABILIFY MAINTENA [Suspect]
     Active Substance: ARIPIPRAZOLE
     Indication: Bipolar disorder
     Route: 065
     Dates: start: 20250205, end: 20250305
  2. ABILIFY [Suspect]
     Active Substance: ARIPIPRAZOLE
     Indication: Bipolar disorder
     Dosage: 10 MG, QD (28 TABLETS)
     Route: 065
     Dates: start: 20250224
  3. DUTASTERIDE [Concomitant]
     Active Substance: DUTASTERIDE
     Indication: Product used for unknown indication
     Dosage: 800 MG, QD (100 TABLETS)
     Route: 065
     Dates: start: 20250205
  4. CLORAZEPATE DIPOTASSIUM [Concomitant]
     Active Substance: CLORAZEPATE DIPOTASSIUM
     Indication: Product used for unknown indication
     Dosage: 20 MG, QD (5MG-5MG-10MG)
     Route: 065
     Dates: start: 20250205
  5. LORMETAZEPAM [Concomitant]
     Active Substance: LORMETAZEPAM
     Indication: Product used for unknown indication
     Dosage: 20 MG, QD
     Route: 065

REACTIONS (2)
  - Parkinsonism [Recovering/Resolving]
  - Akathisia [Recovering/Resolving]

NARRATIVE: CASE EVENT DATE: 20250309
